FAERS Safety Report 24312194 (Version 1)
Quarter: 2024Q3

REPORT INFORMATION
  Report Type: Spontaneous
  Country: IT (occurrence: IT)
  Receive Date: 20240912
  Receipt Date: 20240912
  Transmission Date: 20241017
  Serious: Yes (Other)
  Sender: MERCK
  Company Number: IT-009507513-2409ITA002972

PATIENT
  Sex: Male

DRUGS (5)
  1. KEYTRUDA [Suspect]
     Active Substance: PEMBROLIZUMAB
     Indication: Papillary renal cell carcinoma
     Dosage: 200 MILLIGRAM  (FLAT DOSE), 1ST DOSE
     Dates: start: 20220721, end: 20220721
  2. KEYTRUDA [Suspect]
     Active Substance: PEMBROLIZUMAB
     Dosage: 200 MILLIGRAM  (FLAT DOSE), 3RD DOSE
     Dates: start: 20220901, end: 20220901
  3. AXITINIB [Suspect]
     Active Substance: AXITINIB
     Indication: Papillary renal cell carcinoma
     Dosage: 1ST DOSE
     Dates: start: 20220721, end: 20220721
  4. AXITINIB [Suspect]
     Active Substance: AXITINIB
     Dosage: 3RD DOSE
     Dates: start: 20220901, end: 20220901
  5. AXITINIB [Suspect]
     Active Substance: AXITINIB
     Dosage: 3 MILLIGRAM
     Dates: start: 20221125

REACTIONS (4)
  - Hepatotoxicity [Unknown]
  - Malignant neoplasm progression [Unknown]
  - Palliative care [Unknown]
  - Product use issue [Unknown]

NARRATIVE: CASE EVENT DATE: 20220101
